FAERS Safety Report 8174815-0 (Version None)
Quarter: 2012Q1

REPORT INFORMATION
  Report Type: 
  Country: None (occurrence: None)
  Receive Date: 20120229
  Receipt Date: 20120224
  Transmission Date: 20120608
  Serious: No
  Sender: FDA-Public Use
  Company Number: BR-ABBOTT-11P-020-0844946-00

PATIENT
  Sex: Female
  Weight: 66 kg

DRUGS (6)
  1. CORTICOSTEROIDS [Suspect]
     Indication: PRODUCT USED FOR UNKNOWN INDICATION
  2. NAPROX [Concomitant]
     Indication: ARTHRITIS
     Route: 048
     Dates: start: 19980101
  3. HUMIRA [Suspect]
     Route: 058
     Dates: start: 20110901
  4. HUMIRA [Suspect]
     Indication: RHEUMATOID ARTHRITIS
     Route: 058
     Dates: start: 20090801, end: 20110501
  5. PREDNISONE TAB [Concomitant]
     Indication: ARTHRITIS
     Route: 048
     Dates: start: 19980101
  6. METHOTREXATE [Concomitant]
     Indication: ARTHRITIS
     Route: 048
     Dates: start: 19980101

REACTIONS (3)
  - APPLICATION SITE ERYTHEMA [None]
  - INJECTION SITE ERYTHEMA [None]
  - INJECTION SITE PRURITUS [None]
